FAERS Safety Report 8113945-6 (Version None)
Quarter: 2012Q1

REPORT INFORMATION
  Report Type: 
  Country: None (occurrence: None)
  Receive Date: 20120203
  Receipt Date: 20120127
  Transmission Date: 20120608
  Serious: Yes (Death)
  Sender: FDA-Public Use
  Company Number: GB-GILEAD-2012-0050337

PATIENT

DRUGS (2)
  1. LETAIRIS [Suspect]
     Indication: PULMONARY HYPERTENSION
     Dosage: 5MG PER DAY
     Route: 048
     Dates: start: 20120113
  2. ADCIRCA [Concomitant]
     Route: 048
     Dates: start: 20120101

REACTIONS (2)
  - CARDIAC FAILURE [None]
  - DEATH [None]
